FAERS Safety Report 9222943 (Version 1)
Quarter: 2013Q1

REPORT INFORMATION
  Report Type: Spontaneous
  Country: US (occurrence: None)
  Receive Date: 20120914
  Receipt Date: 20120914
  Transmission Date: 20140127
  Serious: Yes (Other)
  Sender: FDA-Public Use
  Company Number: JPI-P-017771

PATIENT
  Age: 29 Year
  Sex: Female
  Weight: 72.12 kg

DRUGS (6)
  1. XYREM (500 MILLIGRAM/MILLILITERS, SOLUTION) (SODIUM OXYBATE) [Suspect]
     Indication: NARCOLEPSY
     Route: 048
     Dates: start: 201101, end: 2011
  2. BIRTH CONTROL [Concomitant]
  3. LEVOTHYROXINE SODIUM [Concomitant]
  4. HYDROXYCHLOROQUINE [Concomitant]
  5. IRON [Concomitant]
  6. VITAMIN D [Concomitant]

REACTIONS (2)
  - Weight decreased [None]
  - Fatigue [None]
